FAERS Safety Report 4685602-X (Version None)
Quarter: 2005Q2

REPORT INFORMATION
  Report Type: 
  Country: None (occurrence: None)
  Receive Date: 20050608
  Receipt Date: 20050504
  Transmission Date: 20051028
  Serious: Yes (Hospitalization)
  Sender: FDA-Public Use
  Company Number: 05-0059PO

PATIENT
  Age: 24 Year
  Sex: Female

DRUGS (2)
  1. PONTAL (MEFENAMIC ACID ) TABLET [Suspect]
     Indication: TOOTH EXTRACTION
     Dosage: ONCE, ORAL
     Route: 048
     Dates: start: 20050424, end: 20050424
  2. KEFRAL (CEFACLOR) CAPSULE [Suspect]
     Indication: TOOTH EXTRACTION
     Dosage: ONCE, ORAL
     Route: 048
     Dates: start: 20050424, end: 20050424

REACTIONS (7)
  - ANAPHYLACTOID SHOCK [None]
  - CYANOSIS [None]
  - DEPRESSED LEVEL OF CONSCIOUSNESS [None]
  - DYSPNOEA [None]
  - FACE OEDEMA [None]
  - FEELING ABNORMAL [None]
  - SWELLING FACE [None]
